FAERS Safety Report 25704169 (Version 1)
Quarter: 2025Q3

REPORT INFORMATION
  Report Type: Spontaneous
  Country: EU (occurrence: EU)
  Receive Date: 20250820
  Receipt Date: 20250820
  Transmission Date: 20251020
  Serious: Yes (Life-Threatening, Hospitalization, Other)
  Sender: MERCK SHARP & DOHME LLC
  Company Number: EU-009507513-2304240

PATIENT
  Age: 64 Year
  Sex: Male
  Weight: 74 kg

DRUGS (9)
  1. ROCURONIUM [Suspect]
     Active Substance: ROCURONIUM BROMIDE
     Indication: Induction of anaesthesia
     Route: 042
  2. SUGAMMADEX [Suspect]
     Active Substance: SUGAMMADEX
     Indication: Anaphylactic shock
  3. FENTANYL [Concomitant]
     Active Substance: FENTANYL
     Indication: Induction of anaesthesia
  4. LIDOCAINE [Concomitant]
     Active Substance: LIDOCAINE
     Indication: Induction of anaesthesia
  5. PROPOFOL [Concomitant]
     Active Substance: PROPOFOL
     Indication: Induction of anaesthesia
  6. EPINEPHRINE [Concomitant]
     Active Substance: EPINEPHRINE
     Indication: Obstruction
     Route: 055
  7. PREDNISOLONE [Concomitant]
     Active Substance: PREDNISOLONE
     Indication: Product used for unknown indication
     Route: 042
  8. CIMETIDINE [Concomitant]
     Active Substance: CIMETIDINE
     Route: 042
  9. CLEMASTINE [Concomitant]
     Active Substance: CLEMASTINE
     Route: 042

REACTIONS (2)
  - Anaphylactic shock [Recovered/Resolved]
  - Product use in unapproved indication [Unknown]

NARRATIVE: CASE EVENT DATE: 20241028
